FAERS Safety Report 21691423 (Version 1)
Quarter: 2022Q4

REPORT INFORMATION
  Report Type: Spontaneous
  Country: US (occurrence: US)
  Receive Date: 20221207
  Receipt Date: 20221207
  Transmission Date: 20230113
  Serious: Yes (Hospitalization, Other)
  Sender: FDA-Public Use
  Company Number: US-AMGEN-USASP2022204937

PATIENT
  Age: 21 Year
  Sex: Female

DRUGS (7)
  1. RITUXIMAB [Suspect]
     Active Substance: RITUXIMAB
     Indication: Immune tolerance induction
     Dosage: UNK
     Route: 065
  2. BORTEZOMIB [Concomitant]
     Active Substance: BORTEZOMIB
  3. DARATUMUMAB [Concomitant]
     Active Substance: DARATUMUMAB
  4. Immunoglobulin [Concomitant]
     Route: 040
  5. FLUDARABINE [Concomitant]
     Active Substance: FLUDARABINE PHOSPHATE
  6. LAPINE T-LYMPHOCYTE IMMUNE GLOBULIN [Concomitant]
     Active Substance: LAPINE T-LYMPHOCYTE IMMUNE GLOBULIN
  7. CYCLOPHOSPHAMIDE [Concomitant]
     Active Substance: CYCLOPHOSPHAMIDE

REACTIONS (4)
  - Neuropathy peripheral [Unknown]
  - Central-alveolar hypoventilation [Unknown]
  - Drug effective for unapproved indication [Unknown]
  - Off label use [Unknown]
